FAERS Safety Report 7308906-0 (Version None)
Quarter: 2011Q1

REPORT INFORMATION
  Report Type: 
  Country: None (occurrence: None)
  Receive Date: 20110223
  Receipt Date: 20100409
  Transmission Date: 20110831
  Serious: Yes (Other)
  Sender: FDA-Public Use
  Company Number: US-NOVOPROD-307000

PATIENT
  Sex: Male

DRUGS (2)
  1. FEIBA [Suspect]
     Indication: HAEMOPHILIA
     Route: 042
  2. NOVOSEVEN [Suspect]
     Indication: HAEMOPHILIA
     Route: 042

REACTIONS (2)
  - PULMONARY EMBOLISM [None]
  - NO THERAPEUTIC RESPONSE [None]
